FAERS Safety Report 23021318 (Version 1)
Quarter: 2023Q4

REPORT INFORMATION
  Report Type: Spontaneous
  Country: US (occurrence: US)
  Receive Date: 20231003
  Receipt Date: 20231003
  Transmission Date: 20240110
  Serious: Yes (Life-Threatening)
  Sender: FDA-Public Use
  Company Number: US-BAYER-2023A134254

PATIENT
  Age: 61 Year
  Sex: Male

DRUGS (1)
  1. ALEVE [Suspect]
     Active Substance: NAPROXEN SODIUM
     Indication: Pain
     Dosage: 500 MG, BID (ONE IN THE MORNING AND ONE AT NIGHT)
     Route: 048
     Dates: start: 2005, end: 2021

REACTIONS (2)
  - Renal neoplasm [None]
  - Nephrectomy [None]
